FAERS Safety Report 6392379-9 (Version None)
Quarter: 2009Q4

REPORT INFORMATION
  Report Type: 
  Country: None (occurrence: None)
  Receive Date: 20091007
  Receipt Date: 20090930
  Transmission Date: 20100525
  Serious: Yes (Life-Threatening)
  Sender: FDA-Public Use
  Company Number: PHHY2009BR42318

PATIENT
  Sex: Female
  Weight: 65 kg

DRUGS (3)
  1. VOLTAREN [Suspect]
     Indication: HEADACHE
     Dosage: UNK
     Dates: start: 20090924
  2. CODATEN [Suspect]
     Indication: MIGRAINE
     Dosage: 50 MG, TID
     Route: 048
     Dates: start: 20090928
  3. DIPYRONE [Concomitant]
     Dosage: UNK
     Dates: start: 20090924

REACTIONS (13)
  - DYSPHAGIA [None]
  - DYSPNOEA [None]
  - FEELING ABNORMAL [None]
  - GASTROINTESTINAL SOUNDS ABNORMAL [None]
  - HEADACHE [None]
  - HEART RATE DECREASED [None]
  - LAZINESS [None]
  - LOCAL SWELLING [None]
  - NASAL CONGESTION [None]
  - OESOPHAGITIS [None]
  - PHARYNGEAL OEDEMA [None]
  - SENSATION OF HEAVINESS [None]
  - TREMOR [None]
